FAERS Safety Report 7595665-X (Version None)
Quarter: 2011Q3

REPORT INFORMATION
  Report Type: 
  Country: None (occurrence: None)
  Receive Date: 20110707
  Receipt Date: 20110627
  Transmission Date: 20111222
  Serious: Yes (Hospitalization, Disabling)
  Sender: FDA-Public Use
  Company Number: US-MERCK-1101USA02946

PATIENT
  Age: 57 Year
  Sex: Female
  Weight: 68 kg

DRUGS (7)
  1. CALCIUM (UNSPECIFIED) [Concomitant]
     Route: 065
  2. ALBUTEROL [Concomitant]
     Route: 055
  3. CARBATROL [Concomitant]
     Route: 065
  4. FOSAMAX PLUS D [Suspect]
     Indication: OSTEOPOROSIS
     Route: 048
     Dates: start: 20071001, end: 20080101
  5. FOSAMAX [Suspect]
     Route: 048
     Dates: start: 20080221, end: 20080227
  6. VITAMINS (UNSPECIFIED) [Concomitant]
     Route: 065
  7. FOSAMAX [Suspect]
     Indication: OSTEOPOROSIS
     Route: 048
     Dates: start: 20040101, end: 20090101

REACTIONS (17)
  - ABSCESS ORAL [None]
  - ORAL INFECTION [None]
  - ENDOMETRIAL ATROPHY [None]
  - GLUCOSE TOLERANCE IMPAIRED [None]
  - TOOTH EXTRACTION [None]
  - GINGIVAL ABSCESS [None]
  - OSTEOMYELITIS [None]
  - DIZZINESS [None]
  - OSTEONECROSIS OF JAW [None]
  - BREAST CYST [None]
  - PYREXIA [None]
  - JAW DISORDER [None]
  - ANXIETY [None]
  - WEIGHT DECREASED [None]
  - HYDROMETRA [None]
  - BACTERIAL INFECTION [None]
  - DRUG HYPERSENSITIVITY [None]
